FAERS Safety Report 11541916 (Version 6)
Quarter: 2017Q3

REPORT INFORMATION
  Report Type: Report from Study
  Country: AT (occurrence: AT)
  Receive Date: 20150923
  Receipt Date: 20170707
  Transmission Date: 20171127
  Serious: Yes (Death, Other)
  Sender: FDA-Public Use
  Company Number: AT-INCYTE CORPORATION-2015IN004602

PATIENT

DRUGS (14)
  1. PANTOLOC [Concomitant]
     Active Substance: PANTOPRAZOLE SODIUM
     Indication: PROPHYLAXIS
     Route: 065
     Dates: start: 20130910, end: 201410
  2. MARCOUMAR [Concomitant]
     Active Substance: PHENPROCOUMON
     Indication: THROMBOSIS PROPHYLAXIS
     Route: 065
     Dates: start: 20130305, end: 20130827
  3. AUGMENTIN [Concomitant]
     Active Substance: AMOXICILLIN\CLAVULANATE POTASSIUM
     Indication: PNEUMONIA
  4. LASIX [Concomitant]
     Active Substance: FUROSEMIDE
     Indication: OEDEMA PERIPHERAL
     Route: 065
     Dates: start: 20130108, end: 20150509
  5. JAKAVI [Suspect]
     Active Substance: RUXOLITINIB
     Indication: MYELOFIBROSIS
     Dosage: 20 MG, QD
     Route: 048
     Dates: start: 20111018, end: 20140609
  6. AUGMENTIN [Concomitant]
     Active Substance: AMOXICILLIN\CLAVULANATE POTASSIUM
     Indication: INFECTION
     Dosage: UNK
     Route: 065
     Dates: start: 20130205, end: 20130210
  7. ACETOLYT [Concomitant]
     Indication: ASCITES
     Route: 065
     Dates: start: 20130108, end: 201402
  8. ALDACTONE [Concomitant]
     Active Substance: SPIRONOLACTONE
     Indication: OEDEMA PERIPHERAL
     Route: 065
     Dates: start: 20140519, end: 20150509
  9. AQUAPHORIL [Concomitant]
     Active Substance: XIPAMIDE
     Indication: OEDEMA PERIPHERAL
     Route: 065
     Dates: start: 20141027, end: 20150509
  10. JAKAVI [Suspect]
     Active Substance: RUXOLITINIB
     Dosage: 15 MG, UNK
     Route: 065
     Dates: start: 20140610, end: 20141019
  11. JAKAVI [Suspect]
     Active Substance: RUXOLITINIB
     Dosage: 20 MG, UNK
     Route: 065
     Dates: start: 20141020
  12. FUROSEMIDE. [Concomitant]
     Active Substance: FUROSEMIDE
     Indication: PRODUCT USED FOR UNKNOWN INDICATION
     Route: 065
  13. CIPROFLOXACIN. [Concomitant]
     Active Substance: CIPROFLOXACIN
     Indication: ENTEROBACTER INFECTION
     Route: 065
     Dates: start: 20140926, end: 201410
  14. AUGMENTIN [Concomitant]
     Active Substance: AMOXICILLIN\CLAVULANATE POTASSIUM
     Indication: VIRAL UPPER RESPIRATORY TRACT INFECTION

REACTIONS (28)
  - Blood bilirubin increased [Unknown]
  - Protein total decreased [Unknown]
  - Gamma-glutamyltransferase increased [Unknown]
  - Red cell distribution width increased [Unknown]
  - Haemoglobin decreased [Unknown]
  - Staphylococcal sepsis [Not Recovered/Not Resolved]
  - Bilirubin conjugated increased [Unknown]
  - Reticulocyte count increased [Unknown]
  - Aspartate aminotransferase increased [Unknown]
  - Blast cell count increased [Unknown]
  - Blood uric acid increased [Not Recovered/Not Resolved]
  - Blood cholinesterase decreased [Unknown]
  - Basophil count increased [Unknown]
  - Myelocyte count increased [Unknown]
  - Blood alkaline phosphatase increased [Unknown]
  - White blood cell count increased [Unknown]
  - Platelet count increased [Unknown]
  - Metamyelocyte count increased [Unknown]
  - Haematocrit decreased [Unknown]
  - Neuropathy peripheral [Not Recovered/Not Resolved]
  - Cough [Not Recovered/Not Resolved]
  - Blood bilirubin unconjugated increased [Unknown]
  - Mean cell volume decreased [Unknown]
  - Reticulocyte count decreased [Unknown]
  - Lymphocyte count decreased [Unknown]
  - Sudden death [Fatal]
  - Blood lactate dehydrogenase increased [Unknown]
  - Mean cell haemoglobin decreased [Unknown]

NARRATIVE: CASE EVENT DATE: 20111018
